FAERS Safety Report 17747335 (Version 2)
Quarter: 2020Q2

REPORT INFORMATION
  Report Type: Spontaneous
  Country: US (occurrence: US)
  Receive Date: 20200505
  Receipt Date: 20200620
  Transmission Date: 20200714
  Serious: No
  Sender: FDA-Public Use
  Company Number: US-ASTRAZENECA-2020SE54364

PATIENT
  Age: 87 Year
  Sex: Female

DRUGS (1)
  1. BEVESPI AEROSPHERE [Suspect]
     Active Substance: FORMOTEROL FUMARATE\GLYCOPYRROLATE
     Indication: BRONCHIECTASIS
     Dosage: 9MCG/4.8MCG 1 DF TWO TIMES A DAY
     Route: 055

REACTIONS (5)
  - Product use in unapproved indication [Unknown]
  - Malaise [Unknown]
  - Feeling abnormal [Not Recovered/Not Resolved]
  - Drug delivery system malfunction [Unknown]
  - Wrong technique in device usage process [Unknown]
